FAERS Safety Report 22328241 (Version 1)
Quarter: 2023Q2

REPORT INFORMATION
  Report Type: Spontaneous
  Country: US (occurrence: US)
  Receive Date: 20230517
  Receipt Date: 20230517
  Transmission Date: 20230722
  Serious: No
  Sender: FDA-Public Use
  Company Number: US-ABBVIE-4768105

PATIENT
  Sex: Male

DRUGS (1)
  1. IMBRUVICA [Suspect]
     Active Substance: IBRUTINIB
     Indication: Product used for unknown indication
     Dosage: 280 MILLIGRAM
     Route: 048

REACTIONS (4)
  - Lacrimation increased [Unknown]
  - Muscle spasms [Unknown]
  - Rash [Unknown]
  - Dry eye [Unknown]
